FAERS Safety Report 4390820-4 (Version None)
Quarter: 2004Q3

REPORT INFORMATION
  Report Type: 
  Country: None (occurrence: None)
  Receive Date: 20040706
  Receipt Date: 20040706
  Transmission Date: 20050211
  Serious: Yes (Other)
  Sender: FDA-Public Use
  Company Number: None

PATIENT
  Age: 27 Year
  Sex: Female
  Weight: 88.4514 kg

DRUGS (2)
  1. LOVENOX [Suspect]
     Indication: DEEP VEIN THROMBOSIS
     Dosage: 90 MG EVERY 12 H SUBCUTANEOUS
     Route: 058
     Dates: start: 20040401, end: 20040705
  2. LOVENOX [Suspect]
     Indication: PULMONARY EMBOLISM
     Dosage: 90 MG EVERY 12 H SUBCUTANEOUS
     Route: 058
     Dates: start: 20040401, end: 20040705

REACTIONS (6)
  - CONFUSIONAL STATE [None]
  - DIZZINESS [None]
  - GAIT DISTURBANCE [None]
  - MEMORY IMPAIRMENT [None]
  - MENTAL IMPAIRMENT [None]
  - VISION BLURRED [None]
